FAERS Safety Report 4357890-0 (Version None)
Quarter: 2004Q2

REPORT INFORMATION
  Report Type: 
  Country: None (occurrence: None)
  Receive Date: 20040514
  Receipt Date: 20040505
  Transmission Date: 20050107
  Serious: Yes (Hospitalization)
  Sender: FDA-Public Use
  Company Number: PHBS2004TR06166

PATIENT
  Age: 16 Year
  Sex: Female

DRUGS (7)
  1. CYCLOSPORINE [Suspect]
     Indication: IMPETIGO HERPETIFORMIS
     Dosage: 5 MG/KG/DAY
     Route: 048
  2. CORTICOSTEROIDS [Concomitant]
     Route: 061
  3. FLUOCORTOLONE [Concomitant]
     Dosage: 50 MG/DAY
  4. ACETAMINOPHEN [Concomitant]
  5. CEFAZOLIN [Concomitant]
     Dosage: 2 G/DAY
  6. MISOPROSTOL [Concomitant]
  7. FLUID/ELECTROLYTE REPLACEMENT THERAPY [Concomitant]
     Route: 042

REACTIONS (6)
  - DRUG EXPOSURE DURING PREGNANCY [None]
  - DRUG INEFFECTIVE [None]
  - INDUCED LABOUR [None]
  - OLIGOHYDRAMNIOS [None]
  - POSTOPERATIVE INFECTION [None]
  - PREMATURE LABOUR [None]
